FAERS Safety Report 15090604 (Version 1)
Quarter: 2018Q2

REPORT INFORMATION
  Report Type: Spontaneous
  Country: US (occurrence: US)
  Receive Date: 20180629
  Receipt Date: 20180629
  Transmission Date: 20180711
  Serious: No
  Sender: FDA-Public Use
  Company Number: US-PFIZER INC-2018262243

PATIENT
  Age: 27 Year
  Sex: Female
  Weight: 124.3 kg

DRUGS (1)
  1. LYRICA [Suspect]
     Active Substance: PREGABALIN
     Indication: RHEUMATOID ARTHRITIS
     Dosage: 300 MG, 2X/DAY
     Route: 048

REACTIONS (2)
  - Product use in unapproved indication [Unknown]
  - Synovitis [Recovering/Resolving]

NARRATIVE: CASE EVENT DATE: 201804
